FAERS Safety Report 19043895 (Version 1)
Quarter: 2021Q1

REPORT INFORMATION
  Report Type: Report from Study
  Country: ES (occurrence: ES)
  Receive Date: 20210323
  Receipt Date: 20210323
  Transmission Date: 20210420
  Serious: Yes (Disabling)
  Sender: FDA-Public Use
  Company Number: ES-ALNYLAM PHARMACEUTICALS, INC.-ALN-2021-000663

PATIENT

DRUGS (1)
  1. GIVLAARI [Suspect]
     Active Substance: GIVOSIRAN SODIUM
     Indication: PORPHYRIA ACUTE
     Dosage: 2.5 MILLIGRAM/KILOGRAM, MONTHLY
     Route: 058
     Dates: start: 20201014, end: 20201230

REACTIONS (3)
  - Nausea [Recovered/Resolved]
  - Muscle spasms [Recovered/Resolved]
  - Fatigue [Recovered/Resolved]

NARRATIVE: CASE EVENT DATE: 20201110
